FAERS Safety Report 13424784 (Version 7)
Quarter: 2019Q4

REPORT INFORMATION
  Report Type: Report from Study
  Country: CA (occurrence: CA)
  Receive Date: 20170410
  Receipt Date: 20191024
  Transmission Date: 20200122
  Serious: Yes (Hospitalization, Disabling, Other)
  Sender: FDA-Public Use
  Company Number: CA-ACTELION-A-US2017-152015

PATIENT
  Age: 61 Year
  Sex: Female
  Weight: 78.46 kg

DRUGS (27)
  1. UPTRAVI [Suspect]
     Active Substance: SELEXIPAG
     Dosage: 800 MCG, BID
     Route: 048
  2. UPTRAVI [Suspect]
     Active Substance: SELEXIPAG
     Dosage: 200 MCG, BID
     Route: 048
  3. IRON [Concomitant]
     Active Substance: IRON
  4. VIT D [Concomitant]
     Active Substance: VITAMIN D NOS
     Dosage: 10000 IU, UNK
  5. LISINOPRIL. [Concomitant]
     Active Substance: LISINOPRIL
  6. PANTOLOC [Concomitant]
     Active Substance: PANTOPRAZOLE SODIUM
  7. OPSUMIT [Suspect]
     Active Substance: MACITENTAN
     Indication: PULMONARY ARTERIAL HYPERTENSION
     Dosage: 10 MG, QD
     Route: 048
     Dates: start: 20160205
  8. DOMPERIDONE [Concomitant]
     Active Substance: DOMPERIDONE
  9. DILAUDID [Concomitant]
     Active Substance: HYDROMORPHONE HYDROCHLORIDE
  10. CELEXA [Concomitant]
     Active Substance: CITALOPRAM HYDROBROMIDE
  11. LASIX [Concomitant]
     Active Substance: FUROSEMIDE
     Dosage: 80 MG, QD
  12. EMPRACET [Concomitant]
  13. UPTRAVI [Suspect]
     Active Substance: SELEXIPAG
     Dosage: 1400 MCG, BID
     Route: 048
     Dates: start: 20170328
  14. VITAMIN B12 [Concomitant]
     Active Substance: CYANOCOBALAMIN
  15. LYRICA [Concomitant]
     Active Substance: PREGABALIN
  16. UPTRAVI [Suspect]
     Active Substance: SELEXIPAG
     Indication: PULMONARY ARTERIAL HYPERTENSION
     Dosage: 1200 MCG, BID
     Route: 048
     Dates: start: 20170328
  17. CYCLOBENZAPRINE. [Concomitant]
     Active Substance: CYCLOBENZAPRINE
  18. SPIRIVA [Concomitant]
     Active Substance: TIOTROPIUM BROMIDE MONOHYDRATE
  19. AVAMYS [Concomitant]
     Active Substance: FLUTICASONE FUROATE
  20. UPTRAVI [Suspect]
     Active Substance: SELEXIPAG
     Dosage: 600 MCG, BID
     Route: 048
     Dates: start: 20170411
  21. DIAMICRON [Concomitant]
     Active Substance: GLICLAZIDE
  22. SYMBICORT [Concomitant]
     Active Substance: BUDESONIDE\FORMOTEROL FUMARATE DIHYDRATE
  23. DEXILANT [Concomitant]
     Active Substance: DEXLANSOPRAZOLE
  24. UPTRAVI [Suspect]
     Active Substance: SELEXIPAG
     Dosage: 400 MCG, BID
     Route: 048
  25. ADCIRCA [Concomitant]
     Active Substance: TADALAFIL
  26. ATORVASTATIN [Concomitant]
     Active Substance: ATORVASTATIN
  27. METFORMIN [Concomitant]
     Active Substance: METFORMIN HYDROCHLORIDE

REACTIONS (9)
  - Renal disorder [Unknown]
  - Ocular procedural complication [Not Recovered/Not Resolved]
  - Cataract operation complication [Not Recovered/Not Resolved]
  - Bacterial infection [Recovered/Resolved]
  - Diarrhoea [Recovered/Resolved]
  - Abdominal pain [Recovered/Resolved]
  - Limb operation [Not Recovered/Not Resolved]
  - Headache [Recovered/Resolved]
  - Pain in extremity [Not Recovered/Not Resolved]

NARRATIVE: CASE EVENT DATE: 2017
